FAERS Safety Report 6390345-0 (Version None)
Quarter: 2009Q4

REPORT INFORMATION
  Report Type: 
  Country: None (occurrence: None)
  Receive Date: 20091003
  Receipt Date: 20090923
  Transmission Date: 20100525
  Serious: Yes (Other)
  Sender: FDA-Public Use
  Company Number: DSA_41728_2009

PATIENT
  Sex: Male

DRUGS (1)
  1. XENAZINE [Suspect]
     Indication: MONOPARESIS
     Dosage: (DF)

REACTIONS (2)
  - GLOMERULAR FILTRATION RATE DECREASED [None]
  - NO THERAPEUTIC RESPONSE [None]
